FAERS Safety Report 8328786-4 (Version None)
Quarter: 2012Q2

REPORT INFORMATION
  Report Type: 
  Country: None (occurrence: None)
  Receive Date: 20120502
  Receipt Date: 20120427
  Transmission Date: 20120825
  Serious: Yes (Death, Hospitalization)
  Sender: FDA-Public Use
  Company Number: FR-ELI_LILLY_AND_COMPANY-FR201204009633

PATIENT
  Sex: Male

DRUGS (8)
  1. NEXIUM [Concomitant]
  2. POTASSIUM CHLORIDE [Concomitant]
  3. LOVENOX [Concomitant]
     Indication: PROPHYLAXIS
     Dosage: 0.4 ML, QD
     Route: 058
  4. ZYRTEC [Concomitant]
  5. ELOXATIN [Concomitant]
     Indication: BILE DUCT CANCER
     Route: 042
  6. DEXERYL [Concomitant]
  7. PHOSPHONEUROS [Concomitant]
  8. GEMZAR [Suspect]
     Indication: BILE DUCT CANCER NON-RESECTABLE
     Dosage: UNK
     Route: 042
     Dates: start: 20111101

REACTIONS (2)
  - MULTI-ORGAN FAILURE [None]
  - GASTROINTESTINAL HAEMORRHAGE [None]
